FAERS Safety Report 5046107-X (Version None)
Quarter: 2006Q2

REPORT INFORMATION
  Report Type: 
  Country: None (occurrence: None)
  Receive Date: 20060629
  Receipt Date: 20060619
  Transmission Date: 20061013
  Serious: Yes (Other)
  Sender: FDA-Public Use
  Company Number: L06-USA-02571-02

PATIENT
  Age: 28 Year
  Sex: Female

DRUGS (2)
  1. CARBAMAZEPINE [Suspect]
     Indication: GRAND MAL CONVULSION
     Dosage: 1200 MG QD
  2. CARBAMAZEPINE [Suspect]
     Indication: GRAND MAL CONVULSION
     Dosage: 800 MG QD

REACTIONS (1)
  - PETIT MAL EPILEPSY [None]
